FAERS Safety Report 10051467 (Version 2)
Quarter: 2014Q2

REPORT INFORMATION
  Report Type: Report from Study
  Country: CA (occurrence: CA)
  Receive Date: 20140401
  Receipt Date: 20140528
  Transmission Date: 20141212
  Serious: Yes (Death)
  Sender: FDA-Public Use
  Company Number: CA-CELGENEUS-028-21660-14034783

PATIENT
  Sex: 0

DRUGS (2)
  1. ABRAXANE [Suspect]
     Indication: PANCREATIC CARCINOMA METASTATIC
     Dosage: 230 MILLIGRAM
     Route: 041
     Dates: start: 20140317, end: 20140317
  2. GEMCITABINE [Concomitant]
     Indication: PANCREATIC CARCINOMA
     Dosage: 1862 MILLIGRAM
     Route: 041
     Dates: start: 20140317, end: 20140317

REACTIONS (1)
  - Pancreatic carcinoma metastatic [Fatal]
